FAERS Safety Report 21122371 (Version 1)
Quarter: 2022Q3

REPORT INFORMATION
  Report Type: Spontaneous
  Country: US (occurrence: US)
  Receive Date: 20220723
  Receipt Date: 20220723
  Transmission Date: 20221026
  Serious: No
  Sender: FDA-Public Use
  Company Number: US-drreddys-SPO/USA/22/0152302

PATIENT
  Age: 72 Year
  Sex: Male
  Weight: 91.13 kg

DRUGS (7)
  1. ESZOPICLONE [Suspect]
     Active Substance: ESZOPICLONE
     Indication: Panic attack
  2. PFIZER-BIONTECH COVID-19 VACCINE [Suspect]
     Active Substance: TOZINAMERAN
     Indication: COVID-19 immunisation
     Dates: start: 20211214, end: 20211214
  3. PFIZER-BIONTECH COVID-19 VACCINE [Suspect]
     Active Substance: TOZINAMERAN
     Dates: start: 20210220, end: 20210220
  4. PFIZER-BIONTECH COVID-19 VACCINE [Suspect]
     Active Substance: TOZINAMERAN
     Dates: start: 20210319, end: 20210319
  5. CLONAZEPAM [Suspect]
     Active Substance: CLONAZEPAM
     Indication: Panic attack
  6. CHLORTHALIDONE [Concomitant]
     Active Substance: CHLORTHALIDONE
     Indication: Product used for unknown indication
  7. PAXLOVID [Concomitant]
     Active Substance: NIRMATRELVIR\RITONAVIR
     Indication: Product used for unknown indication

REACTIONS (6)
  - Pyrexia [Unknown]
  - Anxiety [Unknown]
  - Hypertension [Unknown]
  - Blister [Unknown]
  - Headache [Unknown]
  - Therapeutic product effect decreased [Unknown]
